FAERS Safety Report 13705763 (Version 1)
Quarter: 2017Q2

REPORT INFORMATION
  Report Type: Spontaneous
  Country: US (occurrence: US)
  Receive Date: 20170630
  Receipt Date: 20170630
  Transmission Date: 20170830
  Serious: Yes (Other)
  Sender: FDA-Public Use
  Company Number: US-ENDO PHARMACEUTICALS INC-2017-003712

PATIENT
  Age: 50 Year
  Sex: Male

DRUGS (2)
  1. XIAFLEX [Suspect]
     Active Substance: COLLAGENASE CLOSTRIDIUM HISTOLYTICUM
     Dosage: 0.58 MG, CYCLE 2-1ST INJECTION
     Route: 026
     Dates: start: 20170613, end: 20170613
  2. XIAFLEX [Suspect]
     Active Substance: COLLAGENASE CLOSTRIDIUM HISTOLYTICUM
     Indication: PEYRONIE^S DISEASE
     Dosage: 0.58 MG, CYCLE 1- TWO INJECTIONS
     Route: 026

REACTIONS (2)
  - Penis disorder [Unknown]
  - Penile contusion [Unknown]

NARRATIVE: CASE EVENT DATE: 20170613
